FAERS Safety Report 9129908 (Version 1)
Quarter: 2013Q1

REPORT INFORMATION
  Report Type: Spontaneous
  Country: DE (occurrence: DE)
  Receive Date: 20130228
  Receipt Date: 20130228
  Transmission Date: 20140127
  Serious: Yes (Other)
  Sender: FDA-Public Use
  Company Number: DE-ROCHE-1192212

PATIENT
  Age: 18 Year
  Sex: Male

DRUGS (3)
  1. CELLCEPT [Suspect]
     Indication: ACQUIRED HAEMOPHILIA
     Route: 065
  2. RITUXIMAB [Suspect]
     Indication: ACQUIRED HAEMOPHILIA
     Route: 065
  3. DEXAMETHASONE [Suspect]
     Indication: ACQUIRED HAEMOPHILIA
     Route: 065

REACTIONS (5)
  - Sepsis [Unknown]
  - Agranulocytosis [Recovered/Resolved]
  - Paronychia [Unknown]
  - Cytomegalovirus infection [Recovered/Resolved]
  - Pneumonia [Unknown]
